FAERS Safety Report 24946970 (Version 1)
Quarter: 2025Q1

REPORT INFORMATION
  Report Type: Spontaneous
  Country: US (occurrence: US)
  Receive Date: 20250210
  Receipt Date: 20250210
  Transmission Date: 20250408
  Serious: No
  Sender: SANOFI AVENTIS
  Company Number: US-SA-2025SA036449

PATIENT
  Age: 27 Year
  Sex: Female
  Weight: 83 kg

DRUGS (18)
  1. KEVZARA [Suspect]
     Active Substance: SARILUMAB
     Indication: Rheumatoid arthritis
     Dosage: 150 MG, QOW
     Route: 058
  2. METHOTREXATE [Suspect]
     Active Substance: METHOTREXATE
  3. GABAPENTIN [Concomitant]
     Active Substance: GABAPENTIN
  4. METFORMIN [Concomitant]
     Active Substance: METFORMIN HYDROCHLORIDE
  5. DULOXETINE HYDROCHLORIDE [Concomitant]
     Active Substance: DULOXETINE HYDROCHLORIDE
  6. SYMBICORT [Concomitant]
     Active Substance: BUDESONIDE\FORMOTEROL FUMARATE DIHYDRATE
  7. BELSOMRA [Concomitant]
     Active Substance: SUVOREXANT
  8. METHYLPREDNISOLONE [Concomitant]
     Active Substance: METHYLPREDNISOLONE
  9. VENTOLIN HFA [Concomitant]
     Active Substance: ALBUTEROL SULFATE
  10. AMITRIPTYLINE HYDROCHLORIDE [Concomitant]
     Active Substance: AMITRIPTYLINE HYDROCHLORIDE
  11. RINVOQ [Concomitant]
     Active Substance: UPADACITINIB
  12. IRON [Concomitant]
     Active Substance: IRON
  13. LURASIDONE [Concomitant]
     Active Substance: LURASIDONE
  14. CELEBREX [Concomitant]
     Active Substance: CELECOXIB
  15. TYLENOL ARTHRITIS PAIN [Concomitant]
     Active Substance: ACETAMINOPHEN
  16. BUPROPION [Concomitant]
     Active Substance: BUPROPION
  17. SINGULAIR [Concomitant]
     Active Substance: MONTELUKAST SODIUM
  18. LAMOTRIGINE [Concomitant]
     Active Substance: LAMOTRIGINE

REACTIONS (2)
  - Neutrophil count decreased [Not Recovered/Not Resolved]
  - Drug ineffective [Unknown]

NARRATIVE: CASE EVENT DATE: 20240701
